FAERS Safety Report 25595215 (Version 2)
Quarter: 2025Q3

REPORT INFORMATION
  Report Type: Spontaneous
  Country: JP (occurrence: JP)
  Receive Date: 20250723
  Receipt Date: 20250813
  Transmission Date: 20251020
  Serious: Yes (Other)
  Sender: AMGEN
  Company Number: JP-DSJP-DS-2025-153631-

PATIENT
  Age: 72 Year
  Sex: Female

DRUGS (5)
  1. DENOSUMAB [Suspect]
     Active Substance: DENOSUMAB
     Indication: Metastases to bone
     Route: 058
  2. ATEZOLIZUMAB [Suspect]
     Active Substance: ATEZOLIZUMAB
     Indication: Breast cancer recurrent
     Route: 065
  3. PACLITAXEL [Suspect]
     Active Substance: PACLITAXEL
     Indication: Breast cancer recurrent
     Route: 065
  4. PACLITAXEL [Suspect]
     Active Substance: PACLITAXEL
     Route: 065
  5. PACLITAXEL [Suspect]
     Active Substance: PACLITAXEL
     Route: 065

REACTIONS (5)
  - Hypothyroidism [Unknown]
  - Hepatic function abnormal [Unknown]
  - Palmar-plantar erythrodysaesthesia syndrome [Not Recovered/Not Resolved]
  - Rash [Not Recovered/Not Resolved]
  - Alopecia [Unknown]
